FAERS Safety Report 5242813-2 (Version None)
Quarter: 2007Q1

REPORT INFORMATION
  Report Type: 
  Country: None (occurrence: None)
  Receive Date: 20070215
  Receipt Date: 20070131
  Transmission Date: 20070707
  Serious: Yes (Other)
  Sender: FDA-Public Use
  Company Number: 2006300533

PATIENT
  Age: 58 Year
  Sex: Male

DRUGS (5)
  1. ROGAINE 5 [Suspect]
     Indication: ALOPECIA
     Dosage: 1/2 CAPFUL TWICE DAILY (2 IN 1 D), TOPICAL
     Route: 061
     Dates: start: 20061001
  2. ROGAINE 5 [Suspect]
  3. PREDNISONE TAB [Suspect]
     Indication: ASTHMA
     Dosage: 2 TIMES YEARLY
  4. PREDNISONE TAB [Suspect]
     Indication: SINUSITIS
     Dosage: 2 TIMES YEARLY
  5. CRESTOR [Concomitant]

REACTIONS (7)
  - COMPUTERISED TOMOGRAM ABNORMAL [None]
  - ERECTILE DYSFUNCTION [None]
  - EXOSTOSIS [None]
  - LIBIDO DECREASED [None]
  - MUSCLE ATROPHY [None]
  - NERVE COMPRESSION [None]
  - NEUROPATHY PERIPHERAL [None]
